FAERS Safety Report 5523854-4 (Version None)
Quarter: 2007Q4

REPORT INFORMATION
  Report Type: 
  Country: None (occurrence: None)
  Receive Date: 20071121
  Receipt Date: 20071114
  Transmission Date: 20080405
  Serious: Yes (Death, Hospitalization)
  Sender: FDA-Public Use
  Company Number: LT-SHR-LT-2007-043255

PATIENT
  Age: 68 Year
  Sex: Female

DRUGS (2)
  1. FLUDARA [Suspect]
     Indication: CHRONIC LYMPHOCYTIC LEUKAEMIA STAGE 2
     Dosage: 30 MG/M2,CYCLES,5TH CYCLE GIVEN
     Route: 042
     Dates: end: 20070801
  2. CYCLOPHOSPHAMIDE [Concomitant]
     Indication: CHRONIC LYMPHOCYTIC LEUKAEMIA STAGE 2
     Dosage: 250 MG/M2,CYCLES,5TH CYCLE GIVEN
     Dates: end: 20070801

REACTIONS (6)
  - BONE MARROW FAILURE [None]
  - DIARRHOEA [None]
  - FEBRILE NEUTROPENIA [None]
  - HEPATORENAL SYNDROME [None]
  - SEPSIS [None]
  - SEPTIC SHOCK [None]
